FAERS Safety Report 9278978 (Version 1)
Quarter: 2013Q2

REPORT INFORMATION
  Report Type: Spontaneous
  Country: GR (occurrence: GR)
  Receive Date: 20130508
  Receipt Date: 20130508
  Transmission Date: 20140414
  Serious: Yes (Hospitalization)
  Sender: FDA-Public Use
  Company Number: GR-GLAXOSMITHKLINE-B0883580A

PATIENT
  Age: 50 Year
  Sex: Female

DRUGS (1)
  1. VOTRIENT [Suspect]
     Indication: RENAL CANCER
     Route: 065

REACTIONS (4)
  - Nephritic syndrome [Unknown]
  - Albuminuria [Unknown]
  - Disease progression [Unknown]
  - Generalised oedema [Unknown]
